FAERS Safety Report 7734485-X (Version None)
Quarter: 2011Q3

REPORT INFORMATION
  Report Type: 
  Country: None (occurrence: None)
  Receive Date: 20110907
  Receipt Date: 20110826
  Transmission Date: 20111222
  Serious: Yes (Hospitalization)
  Sender: FDA-Public Use
  Company Number: US-GLAXOSMITHKLINE-A0802277A

PATIENT
  Age: 57 Year
  Sex: Male
  Weight: 151.4 kg

DRUGS (14)
  1. LEVITRA [Concomitant]
  2. GEMFIBROZIL [Concomitant]
  3. IBUPROFEN [Concomitant]
  4. ZESTRIL [Concomitant]
  5. VIAGRA [Concomitant]
  6. AVODART [Concomitant]
  7. AVANDIA [Suspect]
     Indication: DIABETES MELLITUS
     Dosage: 8MG PER DAY
     Route: 048
     Dates: start: 19990101, end: 20070401
  8. FLOMAX [Concomitant]
  9. AVANDAMET [Suspect]
     Indication: DIABETES MELLITUS
     Route: 048
  10. ALTACE [Concomitant]
  11. GLUCOVANCE [Concomitant]
  12. GLYBURIDE [Concomitant]
  13. GLUCOTROL [Concomitant]
  14. DOXAZOSIN MESYLATE [Concomitant]

REACTIONS (3)
  - CARDIAC FAILURE CONGESTIVE [None]
  - CORONARY ARTERY DISEASE [None]
  - MYOCARDIAL INFARCTION [None]
